FAERS Safety Report 5156121-1 (Version None)
Quarter: 2006Q4

REPORT INFORMATION
  Report Type: 
  Country: None (occurrence: None)
  Receive Date: 20061114
  Receipt Date: 20061101
  Transmission Date: 20070319
  Serious: Yes (Hospitalization)
  Sender: FDA-Public Use
  Company Number: MEDI-0005051

PATIENT
  Age: 48 Year
  Sex: Male

DRUGS (7)
  1. ETHYOL [Suspect]
     Indication: RADIOTHERAPY
     Dosage: 500 MG, 5 IN 5 D, SUBCUTANEOUS; SEE IMAGE
     Route: 058
     Dates: start: 20060907, end: 20060907
  2. ETHYOL [Suspect]
     Indication: RADIOTHERAPY
     Dosage: 500 MG, 5 IN 5 D, SUBCUTANEOUS; SEE IMAGE
     Route: 058
     Dates: start: 20060908, end: 20060915
  3. RADIATION THERAPY [Concomitant]
  4. ERBITUX [Concomitant]
  5. ANZEMET [Concomitant]
  6. CLARITIN [Concomitant]
  7. SALAGEN [Concomitant]

REACTIONS (6)
  - HYPOTENSION [None]
  - INJECTION SITE DISCOLOURATION [None]
  - MALNUTRITION [None]
  - MUCOSAL INFLAMMATION [None]
  - PYREXIA [None]
  - STOMATITIS [None]
